FAERS Safety Report 6386284-1 (Version None)
Quarter: 2009Q4

REPORT INFORMATION
  Report Type: 
  Country: None (occurrence: None)
  Receive Date: 20091002
  Receipt Date: 20090922
  Transmission Date: 20100525
  Serious: Yes (Other)
  Sender: FDA-Public Use
  Company Number: US-JNJFOC-20090907304

PATIENT
  Sex: Male

DRUGS (3)
  1. PREZISTA [Suspect]
     Indication: HIV INFECTION
     Route: 048
  2. PHENYTOIN [Interacting]
     Indication: DRUG USE FOR UNKNOWN INDICATION
  3. RITONAVIR [Concomitant]
     Indication: HIV INFECTION

REACTIONS (5)
  - ANTICONVULSANT DRUG LEVEL INCREASED [None]
  - DRUG INTERACTION [None]
  - FALL [None]
  - NERVOUS SYSTEM DISORDER [None]
  - OFF LABEL USE [None]
